FAERS Safety Report 4445046-2 (Version None)
Quarter: 2004Q3

REPORT INFORMATION
  Report Type: 
  Country: None (occurrence: None)
  Receive Date: 20040907
  Receipt Date: 20040824
  Transmission Date: 20050211
  Serious: Yes (Hospitalization)
  Sender: FDA-Public Use
  Company Number: 2004230104NO

PATIENT
  Age: 36 Year
  Sex: Male

DRUGS (2)
  1. CELEBREX [Suspect]
     Indication: ARTHRALGIA
     Dosage: 100 MG, ORAL
     Route: 048
     Dates: start: 20040805, end: 20040805
  2. CHLORPROMAZINE [Concomitant]

REACTIONS (3)
  - ANGIONEUROTIC OEDEMA [None]
  - APHASIA [None]
  - DYSPNOEA [None]
